FAERS Safety Report 17182572 (Version 1)
Quarter: 2019Q4

REPORT INFORMATION
  Report Type: Report from Study
  Country: FR (occurrence: FR)
  Receive Date: 20191219
  Receipt Date: 20191219
  Transmission Date: 20200122
  Serious: Yes (Death, Other)
  Sender: FDA-Public Use
  Company Number: FR-JNJFOC-20191217653

PATIENT
  Sex: Male
  Weight: 85 kg

DRUGS (7)
  1. METHOTREXATE. [Suspect]
     Active Substance: METHOTREXATE
     Route: 058
     Dates: start: 201508, end: 201510
  2. USTEKINUMAB [Suspect]
     Active Substance: USTEKINUMAB
     Indication: PSORIASIS
     Route: 058
     Dates: start: 20151124, end: 20151224
  3. USTEKINUMAB [Suspect]
     Active Substance: USTEKINUMAB
     Route: 058
     Dates: start: 20151224, end: 20160411
  4. METHOTREXATE. [Suspect]
     Active Substance: METHOTREXATE
     Route: 058
     Dates: start: 20160509, end: 20160509
  5. ACITRETINE [Suspect]
     Active Substance: ACITRETIN
     Dosage: PER OS
     Route: 065
     Dates: start: 201412, end: 201506
  6. FOLIC ACID. [Suspect]
     Active Substance: FOLIC ACID
     Dosage: PER OS
     Route: 065
     Dates: start: 20160509, end: 20160509
  7. SPIRONOLACTONE. [Concomitant]
     Active Substance: SPIRONOLACTONE
     Route: 065
     Dates: start: 2010

REACTIONS (6)
  - Aplasia [Unknown]
  - T-cell lymphoma [Unknown]
  - Dermo-hypodermitis [Unknown]
  - Off label use [Unknown]
  - Septic shock [Fatal]
  - Product use issue [Unknown]
